FAERS Safety Report 24358043 (Version 1)
Quarter: 2024Q3

REPORT INFORMATION
  Report Type: Spontaneous
  Country: JP (occurrence: JP)
  Receive Date: 20240924
  Receipt Date: 20240924
  Transmission Date: 20241016
  Serious: Yes (Other)
  Sender: BAYER
  Company Number: JP-BAYER-2024A135859

PATIENT
  Age: 67 Year
  Sex: Male

DRUGS (1)
  1. XOFIGO [Suspect]
     Active Substance: RADIUM RA-223 DICHLORIDE
     Indication: Prostate cancer
     Dosage: SLOW INTRAVENOUS ADMINISTRATION OF 55 MBQ/KG ONCE, UP TO 6 TIMES EVERY 4 WEEKS
     Route: 041
     Dates: start: 20220120, end: 20220519

REACTIONS (5)
  - Prostate cancer [Not Recovered/Not Resolved]
  - Spinal disorder [Recovering/Resolving]
  - Pain [Recovering/Resolving]
  - Prostatic specific antigen increased [Not Recovered/Not Resolved]
  - Blood alkaline phosphatase increased [Not Recovered/Not Resolved]

NARRATIVE: CASE EVENT DATE: 20220615
